FAERS Safety Report 8257262-2 (Version None)
Quarter: 2012Q2

REPORT INFORMATION
  Report Type: 
  Country: None (occurrence: None)
  Receive Date: 20120403
  Receipt Date: 20120330
  Transmission Date: 20120825
  Serious: No
  Sender: FDA-Public Use
  Company Number: US-PFIZER INC-2012053601

PATIENT
  Sex: Female
  Weight: 70 kg

DRUGS (4)
  1. CYTOMEL [Suspect]
     Dosage: 0.5 DF, 1X/DAY
     Route: 048
  2. CYTOMEL [Suspect]
     Dosage: 0.25 DF, 1X/DAY
     Route: 048
  3. CYTOMEL [Suspect]
     Indication: BASEDOW'S DISEASE
     Dosage: 1 DF, 1X/DAY
     Route: 048
     Dates: start: 20070601
  4. CYTOMEL [Suspect]
     Dosage: UNK
     Route: 048
     Dates: start: 20120101

REACTIONS (4)
  - SLUGGISHNESS [None]
  - VIRAL INFECTION [None]
  - DRUG INEFFECTIVE [None]
  - DYSPNOEA [None]
